FAERS Safety Report 23160380 (Version 2)
Quarter: 2023Q4

REPORT INFORMATION
  Report Type: Spontaneous
  Country: FR (occurrence: FR)
  Receive Date: 20231108
  Receipt Date: 20231116
  Transmission Date: 20240110
  Serious: Yes (Life-Threatening)
  Sender: FDA-Public Use
  Company Number: FR-ANIPHARMA-2023-FR-000183

PATIENT
  Age: 71 Year
  Sex: Male

DRUGS (16)
  1. CANDESARTAN CILEXETIL [Suspect]
     Active Substance: CANDESARTAN CILEXETIL
     Indication: Hypertension
     Dosage: 16 MG DAILY
     Route: 048
     Dates: end: 20210503
  2. VALACYCLOVIR HYDROCHLORIDE [Suspect]
     Active Substance: VALACYCLOVIR HYDROCHLORIDE
     Dosage: 1 G DAILY
     Route: 048
  3. LATANOPROST [Suspect]
     Active Substance: LATANOPROST
     Route: 065
  4. BRINZOLAMIDE [Suspect]
     Active Substance: BRINZOLAMIDE
     Route: 065
  5. PRIMPERAN [Suspect]
     Active Substance: METOCLOPRAMIDE HYDROCHLORIDE
     Dosage: DOSE TEXT: 1 TO 4 TIMES A DAY IN CASE OF NAUSEA AND/OR VOMITING
     Route: 065
  6. POLYETHYLENE GLYCOL 3350 [Suspect]
     Active Substance: POLYETHYLENE GLYCOL 3350
     Dosage: DOSE TEXT: 1 SACHET IN CASE OF CONSTIPATION
     Route: 065
  7. ZOFRAN [Suspect]
     Active Substance: ONDANSETRON HYDROCHLORIDE
     Dosage: DOSE TEXT: 8 MG (SEE PRESCRIPTION): 1 CP MORNING AND EVENING FOR 3 DAYS
     Route: 065
  8. PREDNISOLONE SODIUM METAZOATE [Suspect]
     Active Substance: PREDNISOLONE SODIUM METAZOATE
     Dosage: DOSE TEXT: MORNING AND NOON UP TO
     Route: 065
  9. ASPIRIN [Suspect]
     Active Substance: ASPIRIN
     Dosage: 1 DF DAILY
     Route: 048
     Dates: end: 20210503
  10. FILGRASTIM [Suspect]
     Active Substance: FILGRASTIM
     Dosage: 1 DF DAILY
     Route: 058
     Dates: start: 20210428, end: 20210502
  11. BACTRIM [Suspect]
     Active Substance: SULFAMETHOXAZOLE\TRIMETHOPRIM
     Dosage: 3 DF WEEK
     Route: 048
  12. SIMVASTATIN [Suspect]
     Active Substance: SIMVASTATIN
     Dosage: 20 MG DAILY
     Route: 048
  13. LEUCOVORIN CALCIUM [Suspect]
     Active Substance: LEUCOVORIN CALCIUM
     Dosage: 1 DF WEEK
     Route: 048
  14. RETACRIT [Suspect]
     Active Substance: EPOETIN ALFA-EPBX
     Dosage: 1 DF WEEK
     Route: 058
  15. BENDAMUSTINE HYDROCHLORIDE MONOHYDRATE [Suspect]
     Active Substance: BENDAMUSTINE HYDROCHLORIDE MONOHYDRATE
     Dosage: 280 MG MONTH
     Route: 042
     Dates: start: 20210208
  16. RITUXIMAB [Suspect]
     Active Substance: RITUXIMAB
     Dosage: 700 MG MONTH
     Route: 058
     Dates: start: 20210315, end: 20210423

REACTIONS (1)
  - Ischaemic stroke [Unknown]

NARRATIVE: CASE EVENT DATE: 20210501
